FAERS Safety Report 18029824 (Version 2)
Quarter: 2021Q2

REPORT INFORMATION
  Report Type: Spontaneous
  Country: None (occurrence: US)
  Receive Date: 20200716
  Receipt Date: 20210630
  Transmission Date: 20210717
  Serious: Yes (Other)
  Sender: FDA-Public Use
  Company Number: US-GLAXOSMITHKLINE-US2020132397

PATIENT

DRUGS (3)
  1. RANITIDINE. [Suspect]
     Active Substance: RANITIDINE
     Indication: ABDOMINAL PAIN UPPER
     Dosage: UNK, QD
     Route: 065
     Dates: start: 200501, end: 201901
  2. RANITIDINE. [Suspect]
     Active Substance: RANITIDINE
     Dates: start: 20050615, end: 20190615
  3. RANITIDINE. [Suspect]
     Active Substance: RANITIDINE
     Indication: ABDOMINAL PAIN UPPER
     Dosage: UNK, QD
     Route: 065
     Dates: start: 200501, end: 201901

REACTIONS (1)
  - Pancreatic carcinoma [Unknown]
